FAERS Safety Report 10944705 (Version 1)
Quarter: 2015Q1

REPORT INFORMATION
  Report Type: Spontaneous
  Country: AU (occurrence: AU)
  Receive Date: 20150323
  Receipt Date: 20150323
  Transmission Date: 20150721
  Serious: Yes (Hospitalization)
  Sender: FDA-Public Use
  Company Number: PHHY2015AU033950

PATIENT
  Age: 25 Year
  Sex: Male

DRUGS (9)
  1. DIAZEPAM. [Suspect]
     Active Substance: DIAZEPAM
     Indication: DRUG WITHDRAWAL SYNDROME
     Dosage: 15 MG, BID
     Route: 065
  2. DIAZEPAM. [Suspect]
     Active Substance: DIAZEPAM
     Dosage: 60 MG, QD
     Route: 065
  3. DIAZEPAM. [Suspect]
     Active Substance: DIAZEPAM
     Dosage: 50 MG, QD
     Route: 065
  4. DIAZEPAM. [Suspect]
     Active Substance: DIAZEPAM
     Dosage: 110 MG, QD
  5. LORAZEPAM. [Suspect]
     Active Substance: LORAZEPAM
     Indication: PRODUCT USED FOR UNKNOWN INDICATION
     Dosage: 40 DF, UNK
     Route: 065
  6. DIAZEPAM. [Suspect]
     Active Substance: DIAZEPAM
     Dosage: 65 MG, QD
     Route: 065
  7. ALPRAZOLAM. [Suspect]
     Active Substance: ALPRAZOLAM
     Indication: PRODUCT USED FOR UNKNOWN INDICATION
     Dosage: 60 MG, UNK
     Route: 065
  8. LORAZEPAM. [Suspect]
     Active Substance: LORAZEPAM
     Dosage: 100 MG, UNK
     Route: 065
  9. BUPRENORPHINE [Suspect]
     Active Substance: BUPRENORPHINE
     Indication: DRUG DEPENDENCE
     Dosage: 16 MG, QD
     Route: 065

REACTIONS (25)
  - Mental disorder [Recovered/Resolved]
  - Agitation [Recovered/Resolved]
  - Abnormal behaviour [Recovered/Resolved]
  - Pressure of speech [Recovered/Resolved]
  - Speech disorder [Recovered/Resolved]
  - Elevated mood [Recovered/Resolved]
  - Hallucination, auditory [Recovered/Resolved]
  - Distractibility [Recovered/Resolved]
  - Negative thoughts [Recovered/Resolved]
  - Delirium [Recovered/Resolved]
  - Suicidal ideation [Recovered/Resolved]
  - Poisoning [Recovered/Resolved]
  - Drug withdrawal syndrome [Recovered/Resolved]
  - Aggression [Recovered/Resolved]
  - Drug dependence [Recovered/Resolved]
  - Tremor [Recovered/Resolved]
  - Hallucination, visual [Recovered/Resolved]
  - Persecutory delusion [Recovered/Resolved]
  - Depression [Recovered/Resolved]
  - Overdose [Unknown]
  - Echolalia [Recovered/Resolved]
  - Affect lability [Recovered/Resolved]
  - Somnolence [Recovered/Resolved]
  - Hyperhidrosis [Recovered/Resolved]
  - Intentional product misuse [Recovered/Resolved]
